FAERS Safety Report 6347109-3 (Version None)
Quarter: 2009Q3

REPORT INFORMATION
  Report Type: 
  Country: None (occurrence: None)
  Receive Date: 20090910
  Receipt Date: 20090831
  Transmission Date: 20100115
  Serious: Yes (Hospitalization)
  Sender: FDA-Public Use
  Company Number: DE-PFIZER INC-2009262533

PATIENT
  Age: 65 Year

DRUGS (12)
  1. PREDNISOLONE AND PREDNISOLONE STEAGLATE [Suspect]
     Indication: RHEUMATOID ARTHRITIS
     Dosage: 10 MG, 1X/DAY
     Route: 048
     Dates: start: 20040101, end: 20090327
  2. PREDNISOLONE AND PREDNISOLONE STEAGLATE [Suspect]
     Dosage: 40 MG, 1X/DAY
     Route: 048
     Dates: start: 20090328, end: 20090330
  3. PREDNISOLONE AND PREDNISOLONE STEAGLATE [Suspect]
     Dosage: 30 MG, 1X/DAY
     Route: 048
     Dates: start: 20090331
  4. ETANERCEPT [Suspect]
     Indication: RHEUMATOID ARTHRITIS
     Dosage: 25 MG, 2 IN 1 WEEK
     Route: 058
     Dates: start: 20080101, end: 20090301
  5. ARAVA [Suspect]
     Indication: RHEUMATOID ARTHRITIS
     Dosage: 20 MG, 1X/DAY
     Route: 048
     Dates: start: 20040701, end: 20090327
  6. ARCOXIA [Concomitant]
     Indication: RHEUMATOID ARTHRITIS
     Dosage: 90 MG, 1X/DAY
     Route: 048
     Dates: start: 20080101, end: 20090327
  7. ARCOXIA [Concomitant]
     Dosage: 60 MG, 1X/DAY
     Route: 048
     Dates: start: 20090328
  8. PANTOPRAZOLE [Concomitant]
     Indication: PROPHYLAXIS AGAINST GASTROINTESTINAL ULCER
     Dosage: 40 MG, 1X/DAY
     Route: 048
     Dates: start: 20081001
  9. FOSAMAX [Concomitant]
     Indication: OSTEOPOROSIS
     Dosage: 70 MG, 1X/DAY
     Route: 048
     Dates: start: 20080101
  10. BISOPROLOL [Concomitant]
     Indication: HYPERTENSION
     Dosage: 1.25 MG, 2X/DAY
     Route: 048
     Dates: start: 20081001
  11. CALCILAC [Concomitant]
     Indication: OSTEOPOROSIS
     Dosage: 1 DF, 1X/DAY
     Route: 048
     Dates: start: 20080101
  12. AZATHIOPRINE [Concomitant]
     Dosage: 50 MG, 1X/DAY

REACTIONS (4)
  - ANAL ABSCESS [None]
  - DRUG INTERACTION [None]
  - IMPAIRED HEALING [None]
  - MYOCARDIAL INFARCTION [None]
